FAERS Safety Report 25133526 (Version 7)
Quarter: 2025Q3

REPORT INFORMATION
  Report Type: Report from Study
  Country: CA (occurrence: CA)
  Receive Date: 20250328
  Receipt Date: 20250729
  Transmission Date: 20251020
  Serious: Yes (Hospitalization, Other)
  Sender: JOHNSON AND JOHNSON
  Company Number: CA-JNJFOC-20241289708

PATIENT
  Age: 53 Year
  Sex: Female
  Weight: 88.5 kg

DRUGS (10)
  1. REMICADE [Suspect]
     Active Substance: INFLIXIMAB
     Indication: Crohn^s disease
     Route: 041
  2. REMICADE [Suspect]
     Active Substance: INFLIXIMAB
     Route: 041
     Dates: start: 20220409
  3. REMICADE [Suspect]
     Active Substance: INFLIXIMAB
     Route: 041
  4. REMICADE [Suspect]
     Active Substance: INFLIXIMAB
     Route: 041
     Dates: start: 20121230
  5. REMICADE [Suspect]
     Active Substance: INFLIXIMAB
     Route: 041
  6. REMICADE [Suspect]
     Active Substance: INFLIXIMAB
     Route: 041
  7. REMICADE [Suspect]
     Active Substance: INFLIXIMAB
     Route: 041
  8. REMICADE [Suspect]
     Active Substance: INFLIXIMAB
     Route: 041
  9. REMICADE [Suspect]
     Active Substance: INFLIXIMAB
     Route: 041
  10. REMICADE [Suspect]
     Active Substance: INFLIXIMAB
     Route: 041

REACTIONS (16)
  - Crohn^s disease [Recovering/Resolving]
  - Breast cancer recurrent [Not Recovered/Not Resolved]
  - Urinary tract infection [Recovered/Resolved]
  - Metastatic neoplasm [Not Recovered/Not Resolved]
  - Red blood cell count decreased [Unknown]
  - Cough [Recovered/Resolved]
  - Mobility decreased [Recovering/Resolving]
  - Spinal column injury [Recovering/Resolving]
  - Eyelids pruritus [Not Recovered/Not Resolved]
  - Seasonal allergy [Unknown]
  - Therapeutic response decreased [Unknown]
  - Vertigo positional [Unknown]
  - Drug level below therapeutic [Unknown]
  - Central venous catheterisation [Unknown]
  - Off label use [Unknown]
  - Therapy cessation [Unknown]

NARRATIVE: CASE EVENT DATE: 20241229
